FAERS Safety Report 15740371 (Version 2)
Quarter: 2019Q2

REPORT INFORMATION
  Report Type: Spontaneous
  Country: US (occurrence: US)
  Receive Date: 20181219
  Receipt Date: 20190412
  Transmission Date: 20190711
  Serious: Yes (Other)
  Sender: FDA-Public Use
  Company Number: US-ASTRAZENECA-2018SF48017

PATIENT
  Age: 73 Year
  Sex: Female
  Weight: 74.4 kg

DRUGS (31)
  1. NEXIUM [Suspect]
     Active Substance: ESOMEPRAZOLE MAGNESIUM
     Indication: ULCER
     Dosage: GENERIC (ESOMEPRAZOLE)
     Route: 065
     Dates: start: 201808
  2. DRONABINOL. [Concomitant]
     Active Substance: DRONABINOL
     Indication: NAUSEA
     Dates: start: 2017
  3. HYDROMORPHONE [Concomitant]
     Active Substance: HYDROMORPHONE
     Indication: BLADDER DISORDER
     Dates: start: 2014
  4. HYDROXYZINE [Concomitant]
     Active Substance: HYDROXYZINE HYDROCHLORIDE
     Indication: NAUSEA
     Dates: start: 2018
  5. SPIRONOLACTONE. [Concomitant]
     Active Substance: SPIRONOLACTONE
  6. NEXIUM [Suspect]
     Active Substance: ESOMEPRAZOLE MAGNESIUM
     Indication: ULCER
     Dosage: GENERIC (ESOMEPRAZOLE)
     Route: 065
     Dates: start: 201707, end: 201711
  7. NEXIUM [Suspect]
     Active Substance: ESOMEPRAZOLE MAGNESIUM
     Indication: ULCER
     Dosage: GENERIC (ESOMEPRAZOLE)
     Route: 065
     Dates: start: 201802, end: 201808
  8. POTASSIUM [Concomitant]
     Active Substance: POTASSIUM
     Dates: start: 2015, end: 201506
  9. NEXIUM [Suspect]
     Active Substance: ESOMEPRAZOLE MAGNESIUM
     Indication: ULCER
     Dosage: GENERIC
     Route: 048
     Dates: start: 20130901, end: 20180827
  10. NEXIUM [Suspect]
     Active Substance: ESOMEPRAZOLE MAGNESIUM
     Indication: ULCER
     Dosage: GENERIC (ESOMEPRAZOLE)
     Route: 048
     Dates: start: 20180702
  11. AMLODIPINE [Concomitant]
     Active Substance: AMLODIPINE BESYLATE
     Indication: BLOOD PRESSURE ABNORMAL
     Dates: start: 2018
  12. CARVEDILOL. [Concomitant]
     Active Substance: CARVEDILOL
     Indication: BLOOD PRESSURE ABNORMAL
     Dates: start: 2015
  13. FUROSEMIDE. [Concomitant]
     Active Substance: FUROSEMIDE
     Indication: SWELLING
     Dates: start: 2014
  14. HYDROMORPHONE [Concomitant]
     Active Substance: HYDROMORPHONE
  15. NEXIUM [Suspect]
     Active Substance: ESOMEPRAZOLE MAGNESIUM
     Indication: ULCER
     Dosage: GENERIC (ESOMEPRAZOLE)
     Route: 065
     Dates: start: 201601, end: 201705
  16. CLONAZEPAM. [Concomitant]
     Active Substance: CLONAZEPAM
  17. NEXIUM [Suspect]
     Active Substance: ESOMEPRAZOLE MAGNESIUM
     Indication: ULCER
     Route: 048
     Dates: start: 2013, end: 2015
  18. NEXIUM [Suspect]
     Active Substance: ESOMEPRAZOLE MAGNESIUM
     Indication: ULCER
     Route: 048
     Dates: start: 201402, end: 201509
  19. NEXIUM [Suspect]
     Active Substance: ESOMEPRAZOLE MAGNESIUM
     Indication: ULCER
     Dosage: GENERIC (ESOMEPRAZOLE)
     Route: 065
     Dates: start: 201706
  20. PANTOPRAZOLE [Suspect]
     Active Substance: PANTOPRAZOLE
     Indication: ULCER
     Dosage: GENERIC (PANTOPRAZOLE)
     Route: 065
     Dates: start: 201401
  21. OXYCONTIN [Concomitant]
     Active Substance: OXYCODONE HYDROCHLORIDE
     Indication: PAIN
     Dates: start: 2017
  22. NEXIUM [Suspect]
     Active Substance: ESOMEPRAZOLE MAGNESIUM
     Indication: ULCER
     Route: 048
     Dates: start: 201311, end: 201509
  23. OXYBUTYNIN. [Concomitant]
     Active Substance: OXYBUTYNIN CHLORIDE
     Indication: PAIN
     Dates: start: 2015
  24. SIMVASTATIN. [Concomitant]
     Active Substance: SIMVASTATIN
     Indication: BLOOD CHOLESTEROL INCREASED
     Dates: start: 2014
  25. RANITIDINE. [Concomitant]
     Active Substance: RANITIDINE
     Dates: start: 201410, end: 201506
  26. NEXIUM [Suspect]
     Active Substance: ESOMEPRAZOLE MAGNESIUM
     Indication: ULCER
     Route: 048
     Dates: start: 201509, end: 201512
  27. NEXIUM [Suspect]
     Active Substance: ESOMEPRAZOLE MAGNESIUM
     Indication: ULCER
     Dosage: GENERIC (ESOMEPRAZOLE)
     Route: 065
     Dates: start: 201712, end: 201801
  28. OMEPRAZOLE. [Suspect]
     Active Substance: OMEPRAZOLE
     Indication: ULCER
     Dosage: GENERIC OMEPRAZOLE
     Route: 065
     Dates: start: 201505
  29. HYDROCODONE [Concomitant]
     Active Substance: HYDROCODONE
  30. CLOPIDOGREL [Concomitant]
     Active Substance: CLOPIDOGREL BISULFATE
     Indication: CARDIAC DISORDER
     Dates: start: 2018
  31. CLONIDINE. [Concomitant]
     Active Substance: CLONIDINE
     Indication: BLOOD PRESSURE ABNORMAL
     Dates: start: 2015

REACTIONS (1)
  - Chronic kidney disease [Not Recovered/Not Resolved]

NARRATIVE: CASE EVENT DATE: 2017
